FAERS Safety Report 9482307 (Version 1)
Quarter: 2013Q3

REPORT INFORMATION
  Report Type: Spontaneous
  Country: US (occurrence: US)
  Receive Date: 20130828
  Receipt Date: 20130828
  Transmission Date: 20140515
  Serious: No
  Sender: FDA-Public Use
  Company Number: US-B.I. PHARMACEUTICALS,INC./RIDGEFIELD-2013-BI-25755BP

PATIENT
  Age: 68 Year
  Sex: Female
  Weight: 98 kg

DRUGS (8)
  1. SPIRIVA [Suspect]
     Indication: CHRONIC OBSTRUCTIVE PULMONARY DISEASE
     Dosage: 18 MCG
     Route: 055
     Dates: start: 20130802
  2. DILTIAZEM ER [Concomitant]
     Indication: HYPERTENSION
     Dosage: 360 MG
     Route: 048
  3. SPIRONOLACTONE [Concomitant]
     Indication: HYPERTENSION
     Dosage: 50 MG
     Route: 048
  4. FLUTICASONE NASAL SPRAY [Concomitant]
     Indication: HYPERSENSITIVITY
     Dosage: 2 SPRAYS PER NOSTRIL
     Route: 045
  5. QVAR [Concomitant]
     Indication: ASTHMA
     Dosage: 160 MCG
     Route: 055
  6. FEXOFENADINE [Concomitant]
     Indication: HYPERSENSITIVITY
     Dosage: 360 MG
     Route: 048
  7. FAMOTIDINE [Concomitant]
     Dosage: 20 MG
     Route: 048
  8. ALBUTEROL NEBULIZER [Concomitant]
     Indication: CHRONIC OBSTRUCTIVE PULMONARY DISEASE
     Route: 055

REACTIONS (5)
  - Dry mouth [Not Recovered/Not Resolved]
  - Dysphonia [Not Recovered/Not Resolved]
  - Constipation [Not Recovered/Not Resolved]
  - Back pain [Not Recovered/Not Resolved]
  - Diarrhoea [Recovered/Resolved]
